FAERS Safety Report 7251125-7 (Version None)
Quarter: 2011Q1

REPORT INFORMATION
  Report Type: 
  Country: None (occurrence: None)
  Receive Date: 20110119
  Receipt Date: 20110106
  Transmission Date: 20110831
  Serious: Yes (Hospitalization)
  Sender: FDA-Public Use
  Company Number: 2011CP000007

PATIENT
  Age: 74 Year
  Sex: Male

DRUGS (4)
  1. INIPOMP (PANTOPRAZOLE SODIUM) [Suspect]
     Dosage: 40 MILLIGRAM; 1 DAY; IV
     Route: 042
     Dates: start: 20101122, end: 20101125
  2. PERFALGAN (PARACETAMOL) [Suspect]
     Dosage: 1 GM; 1 DAY; IV
     Route: 042
     Dates: start: 20101122, end: 20101124
  3. LOVENOX [Suspect]
     Dosage: 0.4 MILLIGRAM; 1 DAY
     Dates: start: 20101001, end: 20101124
  4. SPECIAFOLDINE [Concomitant]

REACTIONS (1)
  - THROMBOCYTOPENIA [None]
